FAERS Safety Report 24174835 (Version 1)
Quarter: 2024Q3

REPORT INFORMATION
  Report Type: Spontaneous
  Country: US (occurrence: US)
  Receive Date: 20240805
  Receipt Date: 20240805
  Transmission Date: 20241016
  Serious: No
  Sender: AMGEN
  Company Number: US-AMGEN-USASP2024152785

PATIENT
  Sex: Female

DRUGS (1)
  1. EVENITY [Suspect]
     Active Substance: ROMOSOZUMAB-AQQG
     Indication: Product used for unknown indication
     Dosage: UNK
     Route: 065

REACTIONS (11)
  - Fall [Unknown]
  - Back pain [Recovered/Resolved]
  - Hypersensitivity [Unknown]
  - Abdominal pain upper [Unknown]
  - Nausea [Unknown]
  - Arthritis [Recovering/Resolving]
  - Trigger finger [Unknown]
  - Headache [Unknown]
  - Fatigue [Unknown]
  - Joint injury [Recovering/Resolving]
  - Lipoprotein (a) increased [Unknown]
